FAERS Safety Report 6676808-9 (Version None)
Quarter: 2010Q2

REPORT INFORMATION
  Report Type: 
  Country: None (occurrence: None)
  Receive Date: 20100412
  Receipt Date: 20100402
  Transmission Date: 20101027
  Serious: Yes (Other)
  Sender: FDA-Public Use
  Company Number: US-ROCHE-695681

PATIENT
  Sex: Female

DRUGS (1)
  1. BLINDED BEVACIZUMAB [Suspect]
     Dosage: CYCLE: 21 DAYS, DAY 1 STARTING CYCLE 7X 16 CYCLES (MAX 22 CYCLES TOTAL). FORM INFUSION.
     Route: 042
     Dates: start: 20081208

REACTIONS (2)
  - CEREBRAL ISCHAEMIA [None]
  - VASCULAR ACCESS COMPLICATION [None]
